FAERS Safety Report 17120637 (Version 1)
Quarter: 2019Q4

REPORT INFORMATION
  Report Type: Other
  Country: DE (occurrence: DE)
  Receive Date: 20191206
  Receipt Date: 20191206
  Transmission Date: 20200122
  Serious: Yes (Hospitalization)
  Sender: FDA-Public Use
  Company Number: DE-APTAPHARMA INC.-2077539

PATIENT
  Sex: Male

DRUGS (5)
  1. SPIRONOLACTONE. [Suspect]
     Active Substance: SPIRONOLACTONE
     Route: 065
  2. NIVOLUMAB [Suspect]
     Active Substance: NIVOLUMAB
     Route: 065
     Dates: start: 201711, end: 201801
  3. IBUPROFEN ORAL [Suspect]
     Active Substance: IBUPROFEN
     Indication: PRODUCT USED FOR UNKNOWN INDICATION
     Route: 065
  4. DIPYRONE (METAMIZOLE) [Suspect]
     Active Substance: METAMIZOLE
     Route: 065
  5. PANTOPRAZOLE SODIUM. [Suspect]
     Active Substance: PANTOPRAZOLE SODIUM
     Route: 065

REACTIONS (1)
  - Dermatitis bullous [Recovering/Resolving]
